FAERS Safety Report 6418270-7 (Version None)
Quarter: 2009Q4

REPORT INFORMATION
  Report Type: 
  Country: None (occurrence: None)
  Receive Date: 20091021
  Receipt Date: 20090612
  Transmission Date: 20100525
  Serious: No
  Sender: FDA-Public Use
  Company Number: ALL1-2009-01625

PATIENT
  Age: 41 Year
  Sex: Female
  Weight: 72.6 kg

DRUGS (5)
  1. VYVANSE [Suspect]
     Indication: ATTENTION DEFICIT/HYPERACTIVITY DISORDER
     Dosage: 70 MG, 1X/DAY:QD, ORAL, MG, 1X/DAY:QD (1/2 OF A 70MG CAPSULE), ORAL
     Route: 048
     Dates: start: 20080101, end: 20080101
  2. VYVANSE [Suspect]
     Indication: ATTENTION DEFICIT/HYPERACTIVITY DISORDER
     Dosage: 70 MG, 1X/DAY:QD, ORAL, MG, 1X/DAY:QD (1/2 OF A 70MG CAPSULE), ORAL
     Route: 048
     Dates: start: 20080101
  3. PHENTERMINE [Concomitant]
  4. DYAZIDE [Concomitant]
  5. EXCEDRIN (ACETYLSALICYLIC ACID, CAFFEINE, SALICYLAMIDE) TABLET UNK TO [Concomitant]

REACTIONS (3)
  - COELIAC DISEASE [None]
  - DRUG EFFECT INCREASED [None]
  - DRUG PRESCRIBING ERROR [None]
